FAERS Safety Report 10874674 (Version 1)
Quarter: 2015Q1

REPORT INFORMATION
  Report Type: Spontaneous
  Country: ZA (occurrence: ZA)
  Receive Date: 20150227
  Receipt Date: 20150227
  Transmission Date: 20150721
  Serious: Yes (Hospitalization, Other)
  Sender: FDA-Public Use
  Company Number: ZA-GLAXOSMITHKLINE-ZA2015GSK025132

PATIENT
  Sex: Female

DRUGS (1)
  1. LAMICTIN [Suspect]
     Active Substance: LAMOTRIGINE
     Indication: PRODUCT USED FOR UNKNOWN INDICATION
     Dosage: 800 MG, UNK

REACTIONS (4)
  - Abasia [Unknown]
  - Incorrect dosage administered [Unknown]
  - Aphasia [Unknown]
  - Coordination abnormal [Unknown]
